FAERS Safety Report 16381177 (Version 4)
Quarter: 2019Q3

REPORT INFORMATION
  Report Type: Report from Study
  Country: None (occurrence: AU)
  Receive Date: 20190603
  Receipt Date: 20190715
  Transmission Date: 20191004
  Serious: Yes (Hospitalization)
  Sender: FDA-Public Use
  Company Number: AU-ABBVIE-19K-008-2789472-00

PATIENT
  Sex: Male

DRUGS (1)
  1. HUMIRA [Suspect]
     Active Substance: ADALIMUMAB
     Indication: CROHN^S DISEASE
     Route: 058
     Dates: start: 20190406, end: 2019

REACTIONS (9)
  - Haematoma [Unknown]
  - Abnormal loss of weight [Unknown]
  - Abscess [Not Recovered/Not Resolved]
  - Crohn^s disease [Unknown]
  - Haematoma infection [Unknown]
  - Postoperative abscess [Unknown]
  - Procedural complication [Unknown]
  - Intestinal perforation [Unknown]
  - Hospitalisation [Unknown]

NARRATIVE: CASE EVENT DATE: 2019
